FAERS Safety Report 16513735 (Version 1)
Quarter: 2019Q3

REPORT INFORMATION
  Report Type: Spontaneous
  Country: AR (occurrence: AR)
  Receive Date: 20190702
  Receipt Date: 20190702
  Transmission Date: 20191004
  Serious: Yes (Hospitalization, Other)
  Sender: FDA-Public Use
  Company Number: AR-PFIZER INC-2019278158

PATIENT
  Age: 71 Year
  Sex: Female

DRUGS (2)
  1. EVEROLIMUS. [Concomitant]
     Active Substance: EVEROLIMUS
     Dosage: UNK
  2. AROMASIN [Suspect]
     Active Substance: EXEMESTANE
     Indication: BREAST CANCER METASTATIC
     Dosage: 25 MG, DAILY
     Dates: start: 20190411

REACTIONS (4)
  - Anaemia [Unknown]
  - Cough [Recovered/Resolved]
  - Pneumonitis [Unknown]
  - Asthenia [Unknown]

NARRATIVE: CASE EVENT DATE: 201906
